FAERS Safety Report 5202944-X (Version None)
Quarter: 2006Q4

REPORT INFORMATION
  Report Type: 
  Country: None (occurrence: None)
  Receive Date: 20061018
  Receipt Date: 20060605
  Transmission Date: 20070319
  Serious: Yes (Other)
  Sender: FDA-Public Use
  Company Number: PHEH2006US05324

PATIENT
  Age: 74 Year
  Sex: Female
  Weight: 85.7 kg

DRUGS (1)
  1. ZOMETA [Suspect]
     Indication: BREAST CANCER METASTATIC
     Dosage: 4MG, ONCE/SINGLE, INFUSION
     Dates: start: 20060406, end: 20060406

REACTIONS (3)
  - CONJUNCTIVITIS [None]
  - EYE DISORDER [None]
  - UVEITIS [None]
